FAERS Safety Report 7638920-7 (Version None)
Quarter: 2011Q3

REPORT INFORMATION
  Report Type: 
  Country: None (occurrence: None)
  Receive Date: 20110721
  Receipt Date: 20110707
  Transmission Date: 20111222
  Serious: Yes (Other)
  Sender: FDA-Public Use
  Company Number: MC201100161

PATIENT

DRUGS (1)
  1. ANGIOMAX [Suspect]

REACTIONS (2)
  - THROMBOSIS IN DEVICE [None]
  - OFF LABEL USE [None]
